FAERS Safety Report 7172053-1 (Version None)
Quarter: 2010Q4

REPORT INFORMATION
  Report Type: 
  Country: None (occurrence: None)
  Receive Date: 20101217
  Receipt Date: 20100208
  Transmission Date: 20110411
  Serious: No
  Sender: FDA-Public Use
  Company Number: US-AMGEN-KDL391445

PATIENT

DRUGS (7)
  1. ENBREL [Suspect]
     Indication: RHEUMATOID ARTHRITIS
     Dosage: 50 MG, QWK
     Dates: start: 20091201
  2. TRIAMCINOLONE ACETONIDE [Concomitant]
     Dosage: 75 A?G, UNK
  3. MAGNESIUM [Concomitant]
     Dosage: UNK UNK, UNK
  4. FISH OIL [Concomitant]
     Dosage: UNK UNK, UNK
  5. FEVERFEW [Concomitant]
     Dosage: 100 MG, UNK
  6. RIBOFLAVIN TAB [Concomitant]
     Dosage: 100 MG, UNK
  7. ALBUTEROL SULFATE [Concomitant]
     Dosage: UNK UNK, UNK

REACTIONS (5)
  - GINGIVAL BLEEDING [None]
  - GINGIVAL SWELLING [None]
  - HEADACHE [None]
  - OROPHARYNGEAL PAIN [None]
  - WHITE BLOOD CELL COUNT DECREASED [None]
